FAERS Safety Report 24433481 (Version 1)
Quarter: 2024Q4

REPORT INFORMATION
  Report Type: Spontaneous
  Country: CL (occurrence: CL)
  Receive Date: 20241014
  Receipt Date: 20241014
  Transmission Date: 20250115
  Serious: Yes (Hospitalization)
  Sender: ROCHE
  Company Number: CL-ROCHE-10000102653

PATIENT
  Age: 13 Year
  Sex: Male

DRUGS (1)
  1. HEMLIBRA [Suspect]
     Active Substance: EMICIZUMAB-KXWH
     Indication: Factor VIII deficiency
     Dosage: MAINTENANCE DOSE 1.5 MG/KG EVERY 2 WEEKS
     Route: 065

REACTIONS (4)
  - Epistaxis [Unknown]
  - Underdose [Unknown]
  - Pain [Unknown]
  - Nasopharyngitis [Unknown]

NARRATIVE: CASE EVENT DATE: 20240920
